FAERS Safety Report 23797292 (Version 1)
Quarter: 2024Q2

REPORT INFORMATION
  Report Type: Spontaneous
  Country: BR (occurrence: BR)
  Receive Date: 20240430
  Receipt Date: 20240430
  Transmission Date: 20240716
  Serious: No
  Sender: FDA-Public Use
  Company Number: BR-JNJFOC-20240414271

PATIENT

DRUGS (2)
  1. SIMPONI [Suspect]
     Active Substance: GOLIMUMAB
     Indication: Colitis ulcerative
     Dosage: WEEK 0?SIMPONI AUTOINJECTOR 100.00 MG/ML
     Route: 058
  2. SIMPONI [Suspect]
     Active Substance: GOLIMUMAB
     Dosage: WEEK 2
     Route: 058

REACTIONS (4)
  - Device deployment issue [Unknown]
  - Accidental exposure to product [Unknown]
  - Underdose [Unknown]
  - Off label use [Unknown]
